FAERS Safety Report 4360154-2 (Version None)
Quarter: 2004Q2

REPORT INFORMATION
  Report Type: 
  Country: None (occurrence: None)
  Receive Date: 20040519
  Receipt Date: 20040414
  Transmission Date: 20050107
  Serious: Yes (Other)
  Sender: FDA-Public Use
  Company Number: PHBS2004CA05054

PATIENT
  Age: 36 Year
  Sex: Female

DRUGS (7)
  1. ZELNORM [Suspect]
     Indication: IRRITABLE BOWEL SYNDROME
     Dosage: 6 MG, BID
     Route: 048
     Dates: start: 20030816, end: 20040401
  2. NORTRIPTYLINE HCL [Concomitant]
     Dosage: 25 MG
     Route: 065
  3. LOSEC [Concomitant]
     Dosage: 20 UNK, UNK
  4. ELMIRON [Concomitant]
     Dosage: 100 UNK, UNK
  5. DIANE [Concomitant]
  6. ARTHROTEC [Concomitant]
     Dosage: 75 UNK, UNK
  7. PHENAZONE [Concomitant]
     Dosage: 100 UNK, UNK

REACTIONS (2)
  - DIARRHOEA [None]
  - VOMITING [None]
